FAERS Safety Report 23354971 (Version 2)
Quarter: 2024Q2

REPORT INFORMATION
  Report Type: Report from Study
  Country: US (occurrence: US)
  Receive Date: 20240101
  Receipt Date: 20240422
  Transmission Date: 20240715
  Serious: No
  Sender: FDA-Public Use
  Company Number: US-AstraZeneca-CH-00534860A

PATIENT
  Sex: Female

DRUGS (2)
  1. ULTOMIRIS [Suspect]
     Active Substance: RAVULIZUMAB-CWVZ
     Indication: Myasthenia gravis
     Dosage: UNK UNK, Q56
     Route: 042
  2. ULTOMIRIS [Suspect]
     Active Substance: RAVULIZUMAB-CWVZ
     Dosage: UNK UNK, EVERY 7 WEEKS
     Route: 042

REACTIONS (4)
  - Sinusitis [Unknown]
  - Gait disturbance [Unknown]
  - Visual impairment [Unknown]
  - Balance disorder [Unknown]
